FAERS Safety Report 6939021-3 (Version None)
Quarter: 2010Q3

REPORT INFORMATION
  Report Type: 
  Country: None (occurrence: None)
  Receive Date: 20100824
  Receipt Date: 20100818
  Transmission Date: 20110219
  Serious: Yes (Death, Life-Threatening, Disabling)
  Sender: FDA-Public Use
  Company Number: JP-BAYER-200911473BYL

PATIENT
  Age: 74 Year
  Sex: Male
  Weight: 63 kg

DRUGS (14)
  1. NEXAVAR [Suspect]
     Indication: RENAL CELL CARCINOMA
     Dosage: TOTAL DAILY DOSE: 800 MG  UNIT DOSE: 200 MG
     Route: 048
     Dates: start: 20090407, end: 20090503
  2. MYSLEE [Concomitant]
     Indication: INSOMNIA
     Dosage: TOTAL DAILY DOSE: 5 MG  UNIT DOSE: 5 MG
     Route: 048
     Dates: start: 20090427
  3. LOXONIN [Concomitant]
     Indication: PAIN
     Dosage: UNIT DOSE: 60 MG
     Route: 048
     Dates: start: 20090427
  4. MUCOSTA [Concomitant]
     Indication: GASTRITIS
     Dosage: UNIT DOSE: 100 MG
     Route: 048
     Dates: start: 20090427
  5. LIPITOR [Concomitant]
     Indication: HYPERLIPIDAEMIA
     Dosage: TOTAL DAILY DOSE: 5 MG  UNIT DOSE: 10 MG
     Route: 048
     Dates: start: 20090427
  6. MAINTATE [Concomitant]
     Dosage: TOTAL DAILY DOSE: 2.5 MG  UNIT DOSE: 5 MG
     Route: 048
     Dates: start: 20090427
  7. ATELEC [Concomitant]
     Dosage: TOTAL DAILY DOSE: 10 MG  UNIT DOSE: 10 MG
     Route: 048
     Dates: start: 20090427
  8. DOXAZOSIN MESYLATE [Concomitant]
     Indication: CARDIAC FAILURE
     Dosage: TOTAL DAILY DOSE: 2 MG  UNIT DOSE: 2 MG
     Route: 048
     Dates: start: 20090427
  9. ACTOS [Concomitant]
     Indication: DIABETES MELLITUS
     Dosage: TOTAL DAILY DOSE: 30 MG  UNIT DOSE: 30 MG
     Route: 048
     Dates: start: 20090427
  10. DECADRON [Concomitant]
     Indication: HYPERSENSITIVITY
     Dosage: TOTAL DAILY DOSE: 0.5 MG  UNIT DOSE: 0.5 MG
     Route: 048
     Dates: start: 20090427
  11. METHYCOBAL [Concomitant]
     Indication: HYPERLIPIDAEMIA
     Dosage: TOTAL DAILY DOSE: 1500 ?G  UNIT DOSE: 500 ?G
     Route: 048
     Dates: start: 20090427
  12. ROCEPHIN [Concomitant]
     Indication: INFECTION PROPHYLAXIS
     Route: 042
     Dates: start: 20090504, end: 20090506
  13. DALACIN-S [Concomitant]
     Indication: INFECTION PROPHYLAXIS
     Route: 042
     Dates: start: 20090505, end: 20090506
  14. UREA [Concomitant]
     Route: 061
     Dates: start: 20090407

REACTIONS (4)
  - DRUG HYPERSENSITIVITY [None]
  - HEPATIC FUNCTION ABNORMAL [None]
  - PALMAR-PLANTAR ERYTHRODYSAESTHESIA SYNDROME [None]
  - RESPIRATORY DISORDER [None]
